FAERS Safety Report 22625362 (Version 1)
Quarter: 2023Q2

REPORT INFORMATION
  Report Type: Spontaneous
  Country: US (occurrence: None)
  Receive Date: 20230620
  Receipt Date: 20230620
  Transmission Date: 20230721
  Serious: Yes (Other)
  Sender: FDA-Public Use
  Company Number: None

PATIENT
  Age: 29 Year
  Sex: Male
  Weight: 71.28 kg

DRUGS (1)
  1. ARIPIPRAZOLE [Suspect]
     Active Substance: ARIPIPRAZOLE
     Indication: Schizophrenia
     Dosage: FREQUENCY : DAILY;?
     Route: 048

REACTIONS (4)
  - Refusal of treatment by patient [None]
  - Restlessness [None]
  - Anxiety [None]
  - Akathisia [None]

NARRATIVE: CASE EVENT DATE: 20230503
